FAERS Safety Report 18525740 (Version 1)
Quarter: 2020Q4

REPORT INFORMATION
  Report Type: Spontaneous
  Country: US (occurrence: US)
  Receive Date: 20201120
  Receipt Date: 20201120
  Transmission Date: 20210114
  Serious: Yes (Hospitalization, Other)
  Sender: FDA-Public Use
  Company Number: US-AMICUS THERAPEUTICS, INC.-AMI_1143

PATIENT
  Sex: Female

DRUGS (1)
  1. GALAFOLD [Suspect]
     Active Substance: MIGALASTAT HYDROCHLORIDE
     Indication: FABRY^S DISEASE
     Dosage: 123 MILLIGRAM, QOD
     Route: 048
     Dates: start: 20190612

REACTIONS (6)
  - Asthenia [Unknown]
  - Gait disturbance [Unknown]
  - Myocardial necrosis marker increased [Unknown]
  - Condition aggravated [Unknown]
  - Chest pain [Unknown]
  - Dyspnoea [Unknown]
